FAERS Safety Report 7441389-9 (Version None)
Quarter: 2011Q2

REPORT INFORMATION
  Report Type: 
  Country: None (occurrence: None)
  Receive Date: 20110418
  Receipt Date: 20110411
  Transmission Date: 20111010
  Serious: Yes (Death)
  Sender: FDA-Public Use
  Company Number: DSA_45380_2011

PATIENT
  Sex: Male

DRUGS (4)
  1. COGENTIN [Concomitant]
  2. CLARITIN /00917501/ [Concomitant]
  3. LACTAID [Concomitant]
  4. XENAZINE [Suspect]
     Indication: PRODUCT USED FOR UNKNOWN INDICATION
     Dosage: 25 MG TID ORAL
     Route: 048

REACTIONS (1)
  - DEATH [None]
